FAERS Safety Report 22058522 (Version 5)
Quarter: 2023Q2

REPORT INFORMATION
  Report Type: Report from Study
  Country: CA (occurrence: CA)
  Receive Date: 20230303
  Receipt Date: 20230413
  Transmission Date: 20230722
  Serious: Yes (Hospitalization, Other)
  Sender: FDA-Public Use
  Company Number: CA-ASTELLAS-2023US006967

PATIENT
  Age: 86 Year
  Sex: Female

DRUGS (2)
  1. ENFORTUMAB VEDOTIN [Suspect]
     Active Substance: ENFORTUMAB VEDOTIN
     Indication: Transitional cell carcinoma
     Route: 065
  2. ENFORTUMAB VEDOTIN [Suspect]
     Active Substance: ENFORTUMAB VEDOTIN
     Route: 065

REACTIONS (7)
  - Renal impairment [Unknown]
  - Hypotension [Unknown]
  - Pneumonia [Unknown]
  - Chest pain [Unknown]
  - Renal impairment [Unknown]
  - Weight increased [Unknown]
  - Weight decreased [Unknown]

NARRATIVE: CASE EVENT DATE: 20230301
